FAERS Safety Report 8806352 (Version 1)
Quarter: 2012Q4

REPORT INFORMATION
  Report Type: 
  Country: FR (occurrence: FR)
  Receive Date: 20120925
  Receipt Date: 20120925
  Transmission Date: 20130627
  Serious: Yes (Hospitalization)
  Sender: FDA-Public Use
  Company Number: FR-ASTELLAS-2012EU006980

PATIENT
  Age: 56 Year
  Sex: Female

DRUGS (8)
  1. VESICARE [Suspect]
     Indication: URINARY INCONTINENCE
     Dosage: UNK
     Route: 048
     Dates: end: 20120829
  2. LYRICA [Suspect]
     Indication: SCHIZOAFFECTIVE DISORDER BIPOLAR TYPE
     Dosage: 150 mg, Unknown/D
     Route: 048
     Dates: start: 20120822
  3. LYRICA [Suspect]
     Dosage: UNK
     Route: 048
     Dates: start: 201206, end: 20120829
  4. LEPONEX [Suspect]
     Indication: BIPOLAR DISORDER
     Dosage: 500 mg, Unknown/D
     Route: 048
  5. LYSANXIA [Suspect]
     Indication: BIPOLAR DISORDER
     Dosage: 60 mg, Unknown/D
     Route: 048
     Dates: end: 20120829
  6. IMOVANE [Suspect]
     Dosage: 1 DF, UID/QD
     Route: 048
     Dates: end: 20120829
  7. EBIXA [Suspect]
     Indication: COGNITIVE DISORDER
     Dosage: 10 mg, UID/QD
     Route: 048
     Dates: end: 20120829
  8. DOLIPRANE [Concomitant]
     Dosage: UNK
     Route: 065

REACTIONS (2)
  - Disturbance in attention [Recovered/Resolved]
  - Speech disorder [Recovered/Resolved]
